FAERS Safety Report 6944468-5 (Version None)
Quarter: 2010Q3

REPORT INFORMATION
  Report Type: 
  Country: None (occurrence: None)
  Receive Date: 20100827
  Receipt Date: 20100817
  Transmission Date: 20110219
  Serious: Yes (Life-Threatening)
  Sender: FDA-Public Use
  Company Number: JP-PFIZER INC-2010103605

PATIENT
  Age: 56 Year
  Sex: Female
  Weight: 38 kg

DRUGS (8)
  1. SUNITINIB MALATE [Suspect]
     Indication: RENAL CELL CARCINOMA
     Dosage: 50 MG, 1X/DAY
     Route: 048
     Dates: start: 20090526, end: 20090612
  2. ALFAROL [Concomitant]
     Dosage: 0.25 UG, 1X/DAY
     Route: 048
  3. FERRO-GRADUMET [Concomitant]
     Dosage: 2 TABLETS, 1X/DAY
     Route: 048
  4. NAPROXEN [Concomitant]
     Dosage: 100 MG, 3X/DAY
     Route: 048
  5. TAKEPRON [Concomitant]
     Dosage: 15 MG, 1X/DAY
     Route: 048
  6. LANTUS [Concomitant]
     Dosage: UNK
     Route: 058
  7. HUMALOG [Concomitant]
     Dosage: UNK
     Route: 058
  8. ADALAT CC [Concomitant]
     Dosage: 20 MG, 2X/DAY
     Route: 048
     Dates: start: 20090609

REACTIONS (1)
  - SEPSIS [None]
